FAERS Safety Report 9704315 (Version 2)
Quarter: 2014Q1

REPORT INFORMATION
  Report Type: Spontaneous
  Country: US (occurrence: US)
  Receive Date: 20131122
  Receipt Date: 20140114
  Transmission Date: 20141002
  Serious: Yes (Other)
  Sender: FDA-Public Use
  Company Number: US-TEVA-445919USA

PATIENT
  Sex: Female
  Weight: 77.18 kg

DRUGS (2)
  1. PARAGARD 380A [Suspect]
     Indication: CONTRACEPTION
     Route: 015
  2. ISTALOL [Concomitant]
     Indication: GLAUCOMA

REACTIONS (1)
  - No adverse event [Recovered/Resolved]
